FAERS Safety Report 8002950-6 (Version None)
Quarter: 2011Q4

REPORT INFORMATION
  Report Type: 
  Country: None (occurrence: None)
  Receive Date: 20111222
  Receipt Date: 20110428
  Transmission Date: 20120403
  Serious: No
  Sender: FDA-Public Use
  Company Number: US-GLAXOSMITHKLINE-A0924918A

PATIENT
  Age: 28 Year
  Sex: Male

DRUGS (2)
  1. AVODART [Suspect]
     Indication: PROPHYLAXIS
     Dosage: 2.5MG PER DAY
     Route: 048
     Dates: start: 20101001, end: 20110423
  2. NO CONCURRENT MEDICATION [Concomitant]

REACTIONS (2)
  - LOSS OF LIBIDO [None]
  - OVERDOSE [None]
